FAERS Safety Report 20364292 (Version 1)
Quarter: 2022Q1

REPORT INFORMATION
  Report Type: Spontaneous
  Country: US (occurrence: None)
  Receive Date: 20220121
  Receipt Date: 20220121
  Transmission Date: 20220424
  Serious: Yes (Hospitalization)
  Sender: FDA-Public Use
  Company Number: None

PATIENT
  Age: 52 Year
  Sex: Male

DRUGS (3)
  1. REGADENOSON [Suspect]
     Active Substance: REGADENOSON
     Indication: Cardiovascular disorder
     Dosage: OTHER QUANTITY : 0.4MG;?FREQUENCY : ONCE;?
     Route: 042
     Dates: start: 20211116, end: 20211116
  2. REGADENOSON [Suspect]
     Active Substance: REGADENOSON
     Indication: Vascular operation
  3. METOPROLOL TARTRATE [Suspect]
     Active Substance: METOPROLOL TARTRATE
     Dosage: FREQUENCY : TWICE A DAY;?
     Route: 048

REACTIONS (8)
  - Chest discomfort [None]
  - Malaise [None]
  - Nausea [None]
  - Asthenia [None]
  - Dyspnoea [None]
  - Polydipsia [None]
  - Intentional overdose [None]
  - Bradycardia [None]

NARRATIVE: CASE EVENT DATE: 20211116
